FAERS Safety Report 5920806-7 (Version None)
Quarter: 2008Q4

REPORT INFORMATION
  Report Type: 
  Country: None (occurrence: None)
  Receive Date: 20081016
  Receipt Date: 20081007
  Transmission Date: 20090506
  Serious: Yes (Other)
  Sender: FDA-Public Use
  Company Number: FR-ABBOTT-08P-056-0469851-00

PATIENT
  Sex: Male

DRUGS (4)
  1. DEPAKENE [Suspect]
     Indication: FEBRILE CONVULSION
     Route: 048
     Dates: start: 20080616, end: 20080730
  2. TOPLEXIL [Concomitant]
     Indication: NASOPHARYNGITIS
     Route: 048
     Dates: start: 20080728, end: 20080730
  3. BETAMETHASONE [Concomitant]
     Indication: NASOPHARYNGITIS
     Route: 048
     Dates: start: 20080728, end: 20080730
  4. ACETAMINOPHEN [Concomitant]
     Indication: NASOPHARYNGITIS
     Route: 065
     Dates: start: 20080730, end: 20080730

REACTIONS (7)
  - ASTHENIA [None]
  - BLOOD ALKALINE PHOSPHATASE INCREASED [None]
  - EPILEPSY [None]
  - HYPERAMMONAEMIA [None]
  - NASOPHARYNGITIS [None]
  - OTITIS MEDIA ACUTE [None]
  - POOR WEIGHT GAIN NEONATAL [None]
